FAERS Safety Report 5097745-X (Version None)
Quarter: 2006Q3

REPORT INFORMATION
  Report Type: 
  Country: None (occurrence: None)
  Receive Date: 20060905
  Receipt Date: 20060810
  Transmission Date: 20061208
  Serious: Yes (Other)
  Sender: FDA-Public Use
  Company Number: CHNY2006BR02378

PATIENT
  Age: 58 Year
  Sex: Female
  Weight: 62 kg

DRUGS (1)
  1. TRIMEDAL (NCH) (VITAMIN C, TROXERUTIN, ACETAMINOPHEN (PARACETAMOL), PH [Suspect]
     Indication: INFLUENZA
     Dosage: 1 DF, Q12H, ORAL
     Route: 048
     Dates: start: 20060805

REACTIONS (6)
  - HEADACHE [None]
  - HEART RATE INCREASED [None]
  - NASAL CONGESTION [None]
  - SINUSITIS [None]
  - TACHYCARDIA [None]
  - TREMOR [None]
